FAERS Safety Report 14186395 (Version 2)
Quarter: 2017Q4

REPORT INFORMATION
  Report Type: Spontaneous
  Country: CA (occurrence: CA)
  Receive Date: 20171114
  Receipt Date: 20171119
  Transmission Date: 20180321
  Serious: Yes (Other)
  Sender: FDA-Public Use
  Company Number: CA-CONCORDIA PHARMACEUTICALS INC.-GSH201711-006353

PATIENT
  Age: 74 Year
  Sex: Female

DRUGS (1)
  1. HYDROXYCHLOROQUINE [Suspect]
     Active Substance: HYDROXYCHLOROQUINE
     Indication: SYSTEMIC LUPUS ERYTHEMATOSUS
     Route: 065

REACTIONS (15)
  - Cardiomyopathy [Recovering/Resolving]
  - Right atrial dilatation [Unknown]
  - Bundle branch block right [Unknown]
  - Cardiac septal hypertrophy [Unknown]
  - Bundle branch block left [Unknown]
  - Blood creatine phosphokinase increased [Unknown]
  - Diastolic dysfunction [Unknown]
  - Atrial fibrillation [Unknown]
  - Ejection fraction decreased [Unknown]
  - Left atrial dilatation [Unknown]
  - Right ventricular hypertrophy [Unknown]
  - Myocardial necrosis marker increased [Unknown]
  - Atrioventricular block first degree [Recovering/Resolving]
  - Left ventricular hypertrophy [Unknown]
  - Brain natriuretic peptide abnormal [Unknown]
